FAERS Safety Report 7007762-8 (Version None)
Quarter: 2010Q3

REPORT INFORMATION
  Report Type: 
  Country: None (occurrence: None)
  Receive Date: 20100920
  Receipt Date: 20100830
  Transmission Date: 20110219
  Serious: Yes (Hospitalization)
  Sender: FDA-Public Use
  Company Number: JPI-P-011825

PATIENT
  Age: 18 Year
  Sex: Male

DRUGS (8)
  1. XYREM [Suspect]
     Indication: LYME DISEASE
     Dosage: 4.5 GM (2.25 GM, 2 IN 1 D) ORAL; 9 GM (4.5 GM, 2 IN 1 D) ORAL
     Route: 048
     Dates: start: 20100803, end: 20100801
  2. XYREM [Suspect]
     Indication: LYME DISEASE
     Dosage: 4.5 GM (2.25 GM, 2 IN 1 D) ORAL; 9 GM (4.5 GM, 2 IN 1 D) ORAL
     Route: 048
     Dates: start: 20100801
  3. CLONIDINE [Suspect]
     Indication: SLEEP DISORDER
     Dates: end: 20100807
  4. HOMEOPATIC PREPARATION [Concomitant]
  5. ANTIBIOTICS [Concomitant]
  6. VITAMINS [Concomitant]
  7. AMINO ACIDS [Concomitant]
  8. ANTIOXIDANTS [Concomitant]

REACTIONS (3)
  - INITIAL INSOMNIA [None]
  - POOR QUALITY SLEEP [None]
  - SEPSIS [None]
